FAERS Safety Report 21412659 (Version 1)
Quarter: 2022Q4

REPORT INFORMATION
  Report Type: Spontaneous
  Country: US (occurrence: US)
  Receive Date: 20221005
  Receipt Date: 20221005
  Transmission Date: 20230113
  Serious: No
  Sender: FDA-Public Use
  Company Number: US-SANOFI-01291809

PATIENT
  Sex: Male

DRUGS (1)
  1. MULTAQ [Suspect]
     Active Substance: DRONEDARONE
     Indication: Atrial fibrillation
     Dosage: 400 MG, BID

REACTIONS (3)
  - Chronic gastritis [Unknown]
  - Oesophagitis [Unknown]
  - Nausea [Unknown]

NARRATIVE: CASE EVENT DATE: 20220909
